FAERS Safety Report 6438513-3 (Version None)
Quarter: 2009Q4

REPORT INFORMATION
  Report Type: 
  Country: None (occurrence: None)
  Receive Date: 20091112
  Receipt Date: 20091014
  Transmission Date: 20100525
  Serious: Yes (Hospitalization)
  Sender: FDA-Public Use
  Company Number: IL-MERCK-0907ISR00009

PATIENT
  Age: 89 Year
  Sex: Female

DRUGS (17)
  1. INVANZ [Suspect]
     Indication: KIDNEY INFECTION
     Route: 065
     Dates: start: 20090701, end: 20090704
  2. INVANZ [Suspect]
     Route: 065
     Dates: start: 20090801, end: 20090901
  3. INVANZ [Suspect]
     Indication: DEVICE RELATED INFECTION
     Route: 065
     Dates: start: 20090701, end: 20090704
  4. INVANZ [Suspect]
     Route: 065
     Dates: start: 20090801, end: 20090901
  5. COZAAR [Concomitant]
     Route: 048
  6. FELODIPINE [Concomitant]
     Route: 065
  7. FUROSEMIDE [Concomitant]
     Route: 065
  8. FERROUS SULFATE AND FOLIC ACID [Concomitant]
     Route: 065
  9. ASPIRIN [Concomitant]
     Route: 065
  10. CALCIUM CARBONATE AND CHOLECALCIFEROL [Concomitant]
     Route: 065
  11. ALFACALCIDOL [Concomitant]
     Route: 065
  12. ATENOLOL [Concomitant]
     Route: 065
  13. HYDROXOCOBALAMIN AND PYRIDOXINE HYDROCHLORIDE AND THIAMINE MONONITRATE [Concomitant]
     Route: 065
  14. BISACODYL [Concomitant]
     Route: 065
  15. AMITRIPTYLINE HYDROCHLORIDE [Concomitant]
     Route: 065
  16. ACETAMINOPHEN AND CAFFEINE [Concomitant]
     Route: 065
  17. MUPIROCIN [Concomitant]
     Route: 065

REACTIONS (38)
  - ABDOMINAL HERNIA [None]
  - ABDOMINAL PAIN UPPER [None]
  - ASTHENIA [None]
  - BLOOD PRESSURE INCREASED [None]
  - BREAST MASS [None]
  - CHEST PAIN [None]
  - CHILLS [None]
  - CHOLELITHIASIS [None]
  - CLOSTRIDIUM TEST POSITIVE [None]
  - COGNITIVE DISORDER [None]
  - CONFUSIONAL STATE [None]
  - COUGH [None]
  - CYST [None]
  - DEPRESSED MOOD [None]
  - DEVICE RELATED SEPSIS [None]
  - DIAPHRAGMATIC HERNIA [None]
  - DIARRHOEA [None]
  - ESCHERICHIA INFECTION [None]
  - HAEMATOCHEZIA [None]
  - HAEMATOMA [None]
  - HAEMOGLOBIN DECREASED [None]
  - HALLUCINATION [None]
  - KIDNEY INFECTION [None]
  - LUNG CONSOLIDATION [None]
  - MENTAL IMPAIRMENT [None]
  - NAUSEA [None]
  - PARAESTHESIA [None]
  - PLEURAL EFFUSION [None]
  - PYREXIA [None]
  - RENAL ABSCESS [None]
  - RENAL ATROPHY [None]
  - RENAL CYST [None]
  - RESTLESSNESS [None]
  - SCOLIOSIS [None]
  - TACHYPNOEA [None]
  - THROMBOSIS [None]
  - UMBILICAL HERNIA [None]
  - VOMITING [None]
